FAERS Safety Report 20501959 (Version 2)
Quarter: 2022Q3

REPORT INFORMATION
  Report Type: Spontaneous
  Country: US (occurrence: US)
  Receive Date: 20220222
  Receipt Date: 20220722
  Transmission Date: 20221027
  Serious: Yes (Other)
  Sender: FDA-Public Use
  Company Number: US-009507513-2201USA008605

PATIENT
  Age: 77 Year
  Sex: Female

DRUGS (3)
  1. TEMODAR [Suspect]
     Active Substance: TEMOZOLOMIDE
     Indication: Central nervous system lymphoma
     Dosage: 8 WEEKS OF ONE-WEEK-ON
  2. TEMODAR [Suspect]
     Active Substance: TEMOZOLOMIDE
     Dosage: DAILY FOR 5 DAYS PER 28-DAY CYCLE
  3. RITUXIMAB [Concomitant]
     Active Substance: RITUXIMAB
     Indication: Central nervous system lymphoma
     Dosage: 8 DOSES IN TOTAL, WEEKLY

REACTIONS (4)
  - Renal impairment [Unknown]
  - Drug intolerance [Unknown]
  - Product use in unapproved indication [Unknown]
  - Product use issue [Unknown]

NARRATIVE: CASE EVENT DATE: 20200101
